FAERS Safety Report 6349473-8 (Version None)
Quarter: 2009Q3

REPORT INFORMATION
  Report Type: 
  Country: None (occurrence: None)
  Receive Date: 20090911
  Receipt Date: 20090901
  Transmission Date: 20100115
  Serious: Yes (Other)
  Sender: FDA-Public Use
  Company Number: GR-JNJFOC-20090706802

PATIENT
  Sex: Female

DRUGS (3)
  1. INVEGA [Suspect]
     Indication: SCHIZOAFFECTIVE DISORDER
     Route: 048
  2. CYMBALTA [Concomitant]
  3. CONTRACEPTIVES [Concomitant]
     Indication: MENSTRUAL DISORDER
     Route: 048

REACTIONS (2)
  - OEDEMA PERIPHERAL [None]
  - URINARY INCONTINENCE [None]
